FAERS Safety Report 11804537 (Version 1)
Quarter: 2015Q4

REPORT INFORMATION
  Report Type: Spontaneous
  Country: US (occurrence: US)
  Receive Date: 20151204
  Receipt Date: 20151204
  Transmission Date: 20160305
  Serious: Yes (Death)
  Sender: FDA-Public Use
  Company Number: PHHY2015US157154

PATIENT
  Age: 51 Year
  Sex: Male

DRUGS (2)
  1. OCTREOTIDE. [Suspect]
     Active Substance: OCTREOTIDE
     Indication: MALIGNANT NEOPLASM OF ISLETS OF LANGERHANS
     Route: 065
  2. SIROLIMUS. [Suspect]
     Active Substance: SIROLIMUS
     Indication: MALIGNANT NEOPLASM OF ISLETS OF LANGERHANS
     Route: 065

REACTIONS (6)
  - Oliguria [Fatal]
  - Multi-organ failure [Fatal]
  - Hypotension [Fatal]
  - Hepatic function abnormal [Fatal]
  - Hypoxia [Fatal]
  - Hepatitis B [Fatal]
